FAERS Safety Report 8463111-X (Version None)
Quarter: 2012Q2

REPORT INFORMATION
  Report Type: 
  Country: None (occurrence: None)
  Receive Date: 20120323
  Receipt Date: 20110830
  Transmission Date: 20120825
  Serious: Yes (Other)
  Sender: FDA-Public Use
  Company Number: 163-21880-11090060

PATIENT
  Age: 73 Year
  Sex: Male

DRUGS (2)
  1. REVLIMID [Suspect]
     Indication: MULTIPLE MYELOMA
     Dosage: 15 MG, DAILY X21 DAYS, PO
     Dates: start: 20090401
  2. REVLIMID [Suspect]
     Dosage: 25 MG, DAILY X 21 DAYS, PO
     Dates: start: 20110401

REACTIONS (1)
  - LEUKAEMIA [None]
